FAERS Safety Report 9341813 (Version 1)
Quarter: 2013Q2

REPORT INFORMATION
  Report Type: Spontaneous
  Country: CN (occurrence: CN)
  Receive Date: 20130611
  Receipt Date: 20130611
  Transmission Date: 20140414
  Serious: Yes (Other)
  Sender: FDA-Public Use
  Company Number: CN-EISAI INC-E3810-06482-SPO-CN

PATIENT
  Age: 66 Year
  Sex: Male
  Weight: 60 kg

DRUGS (2)
  1. PARIET (RABEPRAZOLE) [Suspect]
     Indication: GASTRIC ULCER
     Route: 048
     Dates: start: 20120518, end: 20120524
  2. REBAMIPIDE [Concomitant]
     Indication: GASTRIC ULCER
     Dates: start: 20120518

REACTIONS (1)
  - Visual impairment [Unknown]
